FAERS Safety Report 7968258-X (Version None)
Quarter: 2011Q4

REPORT INFORMATION
  Report Type: 
  Country: None (occurrence: None)
  Receive Date: 20111209
  Receipt Date: 20111130
  Transmission Date: 20120403
  Serious: Yes (Other)
  Sender: FDA-Public Use
  Company Number: FR-CEPHALON-2011006099

PATIENT
  Sex: Male

DRUGS (2)
  1. BENDAMUSTINE HCL [Suspect]
     Indication: MANTLE CELL LYMPHOMA STAGE IV
     Route: 041
     Dates: start: 20110625
  2. MABTHERA [Suspect]
     Indication: MANTLE CELL LYMPHOMA STAGE IV
     Dates: start: 20110613, end: 20110623

REACTIONS (1)
  - PANCYTOPENIA [None]
